FAERS Safety Report 8770952 (Version 1)
Quarter: 2012Q4

REPORT INFORMATION
  Report Type: 
  Country: US (occurrence: US)
  Receive Date: 20120906
  Receipt Date: 20120906
  Transmission Date: 20130627
  Serious: Yes (Other)
  Sender: FDA-Public Use
  Company Number: US-PFIZER INC-2012215270

PATIENT
  Age: 18 Year
  Sex: Female
  Weight: 65.8 kg

DRUGS (1)
  1. DEPO-PROVERA [Suspect]
     Indication: CONTRACEPTION
     Dosage: 150 mg, every 3 months
     Dates: start: 20120410

REACTIONS (1)
  - Pharyngitis streptococcal [Recovered/Resolved]
